FAERS Safety Report 15352447 (Version 1)
Quarter: 2018Q3

REPORT INFORMATION
  Report Type: Spontaneous
  Country: US (occurrence: US)
  Receive Date: 20180829
  Receipt Date: 20180829
  Transmission Date: 20181010
  Serious: No
  Sender: FDA-Public Use
  Company Number: None

PATIENT
  Age: 41 Year
  Sex: Female

DRUGS (1)
  1. REMICADE [Suspect]
     Active Substance: INFLIXIMAB
     Indication: COLITIS ULCERATIVE
     Dosage: ?          OTHER STRENGTH:100 MG/VL;OTHER FREQUENCY:EVERY 8 WEEKS;?
     Route: 042
     Dates: start: 20180215

REACTIONS (1)
  - Weight increased [None]

NARRATIVE: CASE EVENT DATE: 20180605
